FAERS Safety Report 14862730 (Version 1)
Quarter: 2018Q2

REPORT INFORMATION
  Report Type: Spontaneous
  Country: US (occurrence: US)
  Receive Date: 20180508
  Receipt Date: 20180508
  Transmission Date: 20180711
  Serious: No
  Sender: FDA-Public Use
  Company Number: US-ALKERMES INC.-ALK-2017-001914

PATIENT
  Sex: Female

DRUGS (6)
  1. CLONIDINE. [Concomitant]
     Active Substance: CLONIDINE
     Indication: DETOXIFICATION
     Dosage: UNK
     Dates: start: 2017, end: 20170509
  2. ULTRAM [Concomitant]
     Active Substance: TRAMADOL HYDROCHLORIDE
     Indication: DETOXIFICATION
     Dosage: UNK
     Dates: start: 2017, end: 20170509
  3. OLANZAPINE. [Concomitant]
     Active Substance: OLANZAPINE
     Indication: DETOXIFICATION
     Dosage: UNK
     Dates: start: 2017, end: 20170509
  4. LORAZEPAM. [Concomitant]
     Active Substance: LORAZEPAM
     Indication: DETOXIFICATION
     Dosage: UNK
     Dates: start: 2017, end: 20170509
  5. BACLOFEN. [Concomitant]
     Active Substance: BACLOFEN
     Indication: DETOXIFICATION
     Dosage: UNK
     Dates: start: 2017, end: 20170509
  6. VIVITROL [Suspect]
     Active Substance: NALTREXONE
     Indication: DRUG DEPENDENCE
     Dosage: 380 MG, QMO
     Route: 030
     Dates: start: 20170511

REACTIONS (2)
  - Injection site urticaria [Not Recovered/Not Resolved]
  - Injection site reaction [Not Recovered/Not Resolved]

NARRATIVE: CASE EVENT DATE: 20170512
